FAERS Safety Report 8400426-5 (Version None)
Quarter: 2012Q2

REPORT INFORMATION
  Report Type: 
  Country: None (occurrence: None)
  Receive Date: 20120531
  Receipt Date: 20120524
  Transmission Date: 20120825
  Serious: Yes (Death, Life-Threatening, Other)
  Sender: FDA-Public Use
  Company Number: FR-ROXANE LABORATORIES, INC.-2012-RO-01308RO

PATIENT
  Age: 60 Year
  Sex: Male

DRUGS (3)
  1. HEPARIN [Suspect]
  2. RECOMBINANT FACTOR VIIA [Suspect]
     Indication: DISSEMINATED INTRAVASCULAR COAGULATION
  3. CLOPIDOGREL [Suspect]

REACTIONS (4)
  - AORTIC THROMBOSIS [None]
  - DISSEMINATED INTRAVASCULAR COAGULATION [None]
  - LEFT VENTRICULAR DYSFUNCTION [None]
  - MULTI-ORGAN FAILURE [None]
